FAERS Safety Report 9868487 (Version 3)
Quarter: 2014Q1

REPORT INFORMATION
  Report Type: Spontaneous
  Country: US (occurrence: US)
  Receive Date: 20140204
  Receipt Date: 20140314
  Transmission Date: 20141002
  Serious: Yes (Other)
  Sender: FDA-Public Use
  Company Number: US-PFIZER INC-2014030013

PATIENT
  Age: 68 Year
  Sex: Male
  Weight: 99.77 kg

DRUGS (6)
  1. LIPITOR [Suspect]
     Indication: BLOOD CHOLESTEROL ABNORMAL
     Dosage: 20 MG, DAILY
  2. DEPO-TESTOSTERONE [Suspect]
     Indication: ANDROGEN DEFICIENCY
     Dosage: UNK, EVERY TWO WEEKS
     Dates: start: 2004
  3. LYRICA [Concomitant]
     Dosage: 50 MG, DAILY
     Dates: start: 201301
  4. CLONAZEPAM [Concomitant]
     Indication: POST-TRAUMATIC STRESS DISORDER
     Dosage: 6 MG (THREE 2 MG TABLETS), DAILY
  5. CLONAZEPAM [Concomitant]
     Indication: ANXIETY
  6. PROPRANOLOL [Concomitant]
     Indication: TREMOR
     Dosage: 40 MG, 2X/DAY

REACTIONS (1)
  - Visual impairment [Unknown]
